FAERS Safety Report 9669407 (Version 1)
Quarter: 2013Q4

REPORT INFORMATION
  Report Type: Spontaneous
  Country: JP (occurrence: None)
  Receive Date: 20131101
  Receipt Date: 20131101
  Transmission Date: 20140711
  Serious: Yes (Other)
  Sender: FDA-Public Use
  Company Number: DAV-AE-MTX-13-59

PATIENT
  Age: 62 Year
  Sex: Female

DRUGS (2)
  1. METHOTREXATE [Suspect]
     Indication: RHEUMATOID ARTHRITIS
  2. TACROLIMUS [Concomitant]

REACTIONS (5)
  - Lymphoproliferative disorder [None]
  - Laryngeal oedema [None]
  - Dysphonia [None]
  - Primary hypothyroidism [None]
  - Pharyngeal oedema [None]
